FAERS Safety Report 7324683-1 (Version None)
Quarter: 2011Q1

REPORT INFORMATION
  Report Type: 
  Country: None (occurrence: None)
  Receive Date: 20110301
  Receipt Date: 20110216
  Transmission Date: 20110831
  Serious: Yes (Other)
  Sender: FDA-Public Use
  Company Number: US-PFIZER INC-US-WYE-H18538710

PATIENT
  Sex: Male
  Weight: 99.8 kg

DRUGS (3)
  1. RITALIN [Concomitant]
     Indication: ATTENTION DEFICIT/HYPERACTIVITY DISORDER
     Route: 065
  2. EFFEXOR XR [Suspect]
     Dosage: 300.0 MG, 1X/DAY
     Route: 048
  3. EFFEXOR XR [Suspect]
     Indication: DEPRESSION
     Dosage: 150.0 MG, 1X/DAY
     Route: 048
     Dates: start: 20010101

REACTIONS (1)
  - BONE SARCOMA [None]
